FAERS Safety Report 5187545-4 (Version None)
Quarter: 2006Q4

REPORT INFORMATION
  Report Type: 
  Country: None (occurrence: None)
  Receive Date: 20061220
  Receipt Date: 20060321
  Transmission Date: 20070319
  Serious: No
  Sender: FDA-Public Use
  Company Number: US-AMGEN-US173273

PATIENT
  Sex: Female

DRUGS (1)
  1. ENBREL [Suspect]
     Indication: PSORIASIS
     Route: 065
     Dates: start: 20060304, end: 20060311

REACTIONS (6)
  - ANOREXIA [None]
  - CONDITION AGGRAVATED [None]
  - FATIGUE [None]
  - HEADACHE [None]
  - MUSCULAR WEAKNESS [None]
  - NAUSEA [None]
